FAERS Safety Report 4572181-0 (Version None)
Quarter: 2005Q1

REPORT INFORMATION
  Report Type: 
  Country: None (occurrence: None)
  Receive Date: 20050202
  Receipt Date: 20050113
  Transmission Date: 20050727
  Serious: Yes (Hospitalization, Other)
  Sender: FDA-Public Use
  Company Number: USA050188234

PATIENT
  Age: 55 Year
  Sex: Male

DRUGS (3)
  1. HUMULIN-HUMAN ULTRTALENTE INSULIN [Suspect]
     Indication: DIABETES MELLITUS
     Dates: start: 19900101, end: 20031201
  2. HUMULIN N [Suspect]
     Indication: DIABETES MELLITUS
     Dosage: 50 U DAY
     Dates: start: 20031201
  3. PROCARDIA              (NIFEDIPINE PA) [Concomitant]

REACTIONS (8)
  - CEREBRAL DISORDER [None]
  - GENERAL PHYSICAL HEALTH DETERIORATION [None]
  - HEPATITIS C [None]
  - HEPATITIS POST TRANSFUSION [None]
  - LIVER DISORDER [None]
  - PHARMACEUTICAL PRODUCT COMPLAINT [None]
  - SPEECH DISORDER [None]
  - TOOTH DISORDER [None]
